FAERS Safety Report 6639707-4 (Version None)
Quarter: 2010Q1

REPORT INFORMATION
  Report Type: 
  Country: None (occurrence: None)
  Receive Date: 20100318
  Receipt Date: 20100304
  Transmission Date: 20100710
  Serious: Yes (Other)
  Sender: FDA-Public Use
  Company Number: PHHY2010JP10842

PATIENT
  Age: 40 Year
  Sex: Female
  Weight: 50 kg

DRUGS (4)
  1. TEGRETOL [Suspect]
     Indication: GLOSSOPHARYNGEAL NEURALGIA
     Dosage: 200 MG, DAILY
     Route: 048
  2. LIDOCAINE [Concomitant]
     Indication: GLOSSOPHARYNGEAL NEURALGIA
     Dosage: UNK
  3. DIBUCAINE [Concomitant]
     Indication: EAR PAIN
     Dosage: 0.4ML, UNK
  4. KETAMINE HCL [Concomitant]
     Indication: EAR PAIN
     Dosage: 10 MG, UNK

REACTIONS (13)
  - ACTIVITIES OF DAILY LIVING IMPAIRED [None]
  - BACK PAIN [None]
  - DIZZINESS [None]
  - EAR PAIN [None]
  - FATIGUE [None]
  - GAIT DISTURBANCE [None]
  - GASTRIC ULCER [None]
  - HEAD DISCOMFORT [None]
  - HEADACHE [None]
  - MALAISE [None]
  - NAUSEA [None]
  - SLEEP DISORDER [None]
  - SOMNOLENCE [None]
